APPROVED DRUG PRODUCT: DICLOFENAC SODIUM
Active Ingredient: DICLOFENAC SODIUM
Strength: 3%
Dosage Form/Route: GEL;TOPICAL
Application: A206298 | Product #001 | TE Code: AB
Applicant: SUN PHARMA CANADA INC
Approved: Apr 28, 2016 | RLD: No | RS: Yes | Type: RX